FAERS Safety Report 9316626 (Version 1)
Quarter: 2013Q2

REPORT INFORMATION
  Report Type: Spontaneous
  Country: DE (occurrence: DE)
  Receive Date: 20130530
  Receipt Date: 20130530
  Transmission Date: 20140414
  Serious: Yes (Congenital Anomaly)
  Sender: FDA-Public Use
  Company Number: DE-TEVA-405352GER

PATIENT
  Age: 0 Year
  Sex: Male
  Weight: 3.51 kg

DRUGS (7)
  1. VENLAFAXINE [Suspect]
     Route: 064
  2. METOPROLOL [Concomitant]
     Route: 064
  3. VOMEX A [Concomitant]
     Route: 064
  4. AMOXICILLIN [Concomitant]
     Route: 064
  5. FEMIBION SCHWANGERSCHAFT 1 [Concomitant]
     Route: 064
  6. MAALOXAN [Concomitant]
     Route: 064
  7. PARACETAMOL [Concomitant]
     Route: 064

REACTIONS (1)
  - Ventricular septal defect [Recovered/Resolved]
